FAERS Safety Report 7949064-9 (Version None)
Quarter: 2011Q4

REPORT INFORMATION
  Report Type: 
  Country: None (occurrence: None)
  Receive Date: 20111130
  Receipt Date: 20110919
  Transmission Date: 20120403
  Serious: No
  Sender: FDA-Public Use
  Company Number: US-BRISTOL-MYERS SQUIBB COMPANY-16070120

PATIENT
  Age: 55 Year
  Sex: Male

DRUGS (2)
  1. KOMBIGLYZE XR [Suspect]
  2. METFORMIN HCL [Concomitant]

REACTIONS (1)
  - OEDEMA PERIPHERAL [None]
